FAERS Safety Report 10662138 (Version 1)
Quarter: 2014Q4

REPORT INFORMATION
  Report Type: Spontaneous
  Country: US (occurrence: None)
  Receive Date: 20141217
  Receipt Date: 20141217
  Transmission Date: 20150529
  Serious: Yes (Other)
  Sender: FDA-Public Use
  Company Number: None

PATIENT
  Age: 51 Year
  Sex: Female

DRUGS (8)
  1. XELJANZ [Suspect]
     Active Substance: TOFACITINIB CITRATE
     Indication: RHEUMATOID ARTHRITIS
     Route: 048
     Dates: start: 20140909, end: 20141210
  2. CYMBALTA [Concomitant]
     Active Substance: DULOXETINE HYDROCHLORIDE
  3. LEVOTHYROXINE [Concomitant]
     Active Substance: LEVOTHYROXINE
  4. METHOTREXATE [Concomitant]
     Active Substance: METHOTREXATE
  5. REMERON [Concomitant]
     Active Substance: MIRTAZAPINE
  6. RANITIDINE [Concomitant]
     Active Substance: RANITIDINE\RANITIDINE HYDROCHLORIDE
  7. VESICARE [Concomitant]
     Active Substance: SOLIFENACIN SUCCINATE
  8. LYRICA [Concomitant]
     Active Substance: PREGABALIN

REACTIONS (2)
  - Red blood cell sedimentation rate increased [None]
  - No therapeutic response [None]

NARRATIVE: CASE EVENT DATE: 20141210
